FAERS Safety Report 22161650 (Version 1)
Quarter: 2023Q1

REPORT INFORMATION
  Report Type: Spontaneous
  Country: CO (occurrence: None)
  Receive Date: 20230331
  Receipt Date: 20230331
  Transmission Date: 20230417
  Serious: Yes (Life-Threatening, Hospitalization)
  Sender: FDA-Public Use
  Company Number: 2023A075459

PATIENT
  Age: 65 Year
  Sex: Female

DRUGS (7)
  1. TICAGRELOR [Interacting]
     Active Substance: TICAGRELOR
     Route: 048
  2. EZETIMIBE\ROSUVASTATIN [Interacting]
     Active Substance: EZETIMIBE\ROSUVASTATIN
     Dosage: 40MG/10MG DAILY
  3. LOSARTAN [Concomitant]
     Active Substance: LOSARTAN
  4. CARVEDILOL [Concomitant]
     Active Substance: CARVEDILOL
  5. LINAGLIPTIN [Concomitant]
     Active Substance: LINAGLIPTIN
  6. INSULIN DETEMIR [Concomitant]
     Active Substance: INSULIN DETEMIR
  7. ASPIRIN [Concomitant]
     Active Substance: ASPIRIN

REACTIONS (3)
  - Drug interaction [Unknown]
  - Acute kidney injury [Unknown]
  - Rhabdomyolysis [Unknown]
